FAERS Safety Report 25954594 (Version 1)
Quarter: 2025Q4

REPORT INFORMATION
  Report Type: Report from Study
  Country: US (occurrence: US)
  Receive Date: 20251024
  Receipt Date: 20251024
  Transmission Date: 20260118
  Serious: Yes (Death)
  Sender: ALEXION PHARMACEUTICALS
  Company Number: US-AstraZeneca-CH-00976162A

PATIENT
  Sex: Female

DRUGS (3)
  1. IMFINZI [Suspect]
     Active Substance: DURVALUMAB
     Indication: Lung neoplasm malignant
     Dosage: 30 MILLILITER, QMONTH
  2. IMFINZI [Suspect]
     Active Substance: DURVALUMAB
     Indication: Metastases to bone
  3. IMFINZI [Suspect]
     Active Substance: DURVALUMAB
     Indication: Metastases to central nervous system

REACTIONS (1)
  - Death [Fatal]
